FAERS Safety Report 11907017 (Version 2)
Quarter: 2016Q1

REPORT INFORMATION
  Report Type: Spontaneous
  Country: BR (occurrence: BR)
  Receive Date: 20160111
  Receipt Date: 20160121
  Transmission Date: 20160526
  Serious: Yes (Death)
  Sender: FDA-Public Use
  Company Number: BR-PFIZER INC-2016001626

PATIENT
  Age: 39 Year
  Sex: Male

DRUGS (4)
  1. SUTENT [Suspect]
     Active Substance: SUNITINIB MALATE
     Dosage: 100 MG, CYCLIC (1 TABLET A DAY, FOR 4 WEEKS AND PAUSED FOR 2 WEEKS/4 X 2)
     Route: 048
     Dates: start: 201510, end: 201512
  2. VOTRIENT [Suspect]
     Active Substance: PAZOPANIB HYDROCHLORIDE
  3. MORPHINE [Concomitant]
     Active Substance: MORPHINE
     Dosage: UNK
     Dates: start: 201505
  4. SUTENT [Suspect]
     Active Substance: SUNITINIB MALATE
     Indication: METASTATIC RENAL CELL CARCINOMA
     Dosage: 50 MG, CYCLE (1 TABLET A DAY, FOR 4 WEEKS AND PAUSED FOR 2 WEEKS/4 X 2)
     Route: 048
     Dates: start: 201510, end: 201512

REACTIONS (2)
  - Disease progression [Fatal]
  - Metastatic renal cell carcinoma [Fatal]

NARRATIVE: CASE EVENT DATE: 2015
